FAERS Safety Report 4331949-6 (Version None)
Quarter: 2004Q2

REPORT INFORMATION
  Report Type: 
  Country: None (occurrence: None)
  Receive Date: 20040405
  Receipt Date: 20030625
  Transmission Date: 20050107
  Serious: No
  Sender: FDA-Public Use
  Company Number: US-GLAXOSMITHKLINE-A0414029A

PATIENT
  Age: 72 Year
  Sex: Female

DRUGS (3)
  1. SEREVENT [Suspect]
     Indication: ASTHMA
     Route: 055
  2. ALBUTEROL [Concomitant]
  3. VITAMIN C [Concomitant]

REACTIONS (4)
  - EYE SWELLING [None]
  - FATIGUE [None]
  - LYMPHADENOPATHY [None]
  - THROAT TIGHTNESS [None]
